FAERS Safety Report 8072006-5 (Version None)
Quarter: 2012Q1

REPORT INFORMATION
  Report Type: 
  Country: None (occurrence: None)
  Receive Date: 20120126
  Receipt Date: 20120124
  Transmission Date: 20120608
  Serious: Yes (Other)
  Sender: FDA-Public Use
  Company Number: SE-BAYER-2012-004715

PATIENT
  Age: 48 Year
  Sex: Female

DRUGS (5)
  1. ANERVAN [Concomitant]
  2. NAPROXEN [Concomitant]
     Dosage: 500 MG, UNK
  3. AMLODIPINE [Concomitant]
  4. BETASERON [Suspect]
     Indication: MULTIPLE SCLEROSIS
     Dosage: UNK
     Dates: start: 20051201
  5. DICLOFENAC EPOLAMINE [Concomitant]

REACTIONS (4)
  - INFECTION [None]
  - ERYSIPELAS [None]
  - MULTIPLE SCLEROSIS RELAPSE [None]
  - WOUND INFECTION FUNGAL [None]
